FAERS Safety Report 16463488 (Version 1)
Quarter: 2019Q2

REPORT INFORMATION
  Report Type: Spontaneous
  Country: US (occurrence: US)
  Receive Date: 20190513
  Receipt Date: 20190513
  Transmission Date: 20190711
  Serious: Yes (Hospitalization)
  Sender: FDA-Public Use
  Company Number: None

PATIENT
  Sex: Female

DRUGS (22)
  1. LISINOPRIL. [Concomitant]
     Active Substance: LISINOPRIL
  2. TRAZODONE [Concomitant]
     Active Substance: TRAZODONE HYDROCHLORIDE
  3. TRESIBA FLEX INJ [Concomitant]
  4. FOLIC ACID. [Concomitant]
     Active Substance: FOLIC ACID
  5. METHOTREXATE. [Concomitant]
     Active Substance: METHOTREXATE
  6. TIZANIDINE. [Concomitant]
     Active Substance: TIZANIDINE
  7. CHANTIX [Concomitant]
     Active Substance: VARENICLINE TARTRATE
  8. RANITIDINE. [Concomitant]
     Active Substance: RANITIDINE
  9. HYDROXO/APAP [Concomitant]
  10. ENBREL [Suspect]
     Active Substance: ETANERCEPT
     Indication: RHEUMATIC HEART DISEASE
     Route: 058
     Dates: start: 20190226
  11. DIXYCLOMINE [Concomitant]
  12. DULOXETINE. [Concomitant]
     Active Substance: DULOXETINE
  13. HYDROCHLOROT [Concomitant]
     Active Substance: HYDROCHLOROTHIAZIDE
  14. HYDROXYCHLOR [Concomitant]
     Active Substance: HYDROXYCHLOROQUINE
  15. TRULICITY INJ [Concomitant]
  16. SIMVASTATIN. [Concomitant]
     Active Substance: SIMVASTATIN
  17. VERAPAMIL [Concomitant]
     Active Substance: VERAPAMIL HYDROCHLORIDE
  18. CYCLOBENZAPR [Concomitant]
     Active Substance: CYCLOBENZAPRINE
  19. LYRICA [Concomitant]
     Active Substance: PREGABALIN
  20. METFORMIN [Concomitant]
     Active Substance: METFORMIN HYDROCHLORIDE
  21. PANTOPRAZOLE [Concomitant]
     Active Substance: PANTOPRAZOLE
  22. SAVELLA [Concomitant]
     Active Substance: MILNACIPRAN HYDROCHLORIDE

REACTIONS (2)
  - Nausea [None]
  - Pain [None]
